FAERS Safety Report 14947373 (Version 1)
Quarter: 2018Q2

REPORT INFORMATION
  Report Type: Spontaneous
  Country: US (occurrence: US)
  Receive Date: 20180529
  Receipt Date: 20180529
  Transmission Date: 20180711
  Serious: No
  Sender: FDA-Public Use
  Company Number: US-WEST-WARD PHARMACEUTICALS CORP.-US-H14001-17-03980

PATIENT
  Age: 68 Year
  Sex: Male

DRUGS (5)
  1. PREDNISONE. [Suspect]
     Active Substance: PREDNISONE
     Route: 065
     Dates: start: 2017
  2. PREDNISONE. [Suspect]
     Active Substance: PREDNISONE
     Route: 048
  3. PREDNISONE. [Suspect]
     Active Substance: PREDNISONE
     Route: 048
     Dates: end: 201710
  4. PREDNISONE. [Suspect]
     Active Substance: PREDNISONE
     Indication: HEPATIC CANCER
     Route: 048
     Dates: start: 201703, end: 201710
  5. OPDIVO [Concomitant]
     Active Substance: NIVOLUMAB
     Indication: HEPATIC CANCER
     Route: 065

REACTIONS (2)
  - Vocal cord paralysis [Not Recovered/Not Resolved]
  - Diplopia [Recovered/Resolved]

NARRATIVE: CASE EVENT DATE: 2017
